FAERS Safety Report 18043936 (Version 4)
Quarter: 2021Q3

REPORT INFORMATION
  Report Type: Spontaneous
  Country: US (occurrence: US)
  Receive Date: 20200720
  Receipt Date: 20210705
  Transmission Date: 20211014
  Serious: No
  Sender: FDA-Public Use
  Company Number: US-SA-2020SA182230

PATIENT
  Age: 52 Year
  Sex: Male

DRUGS (2)
  1. DUPIXENT [Suspect]
     Active Substance: DUPILUMAB
     Indication: PULMONARY EOSINOPHILIA
     Dosage: 300 MG, QOW
     Route: 058
     Dates: start: 20200708
  2. DUPIXENT [Suspect]
     Active Substance: DUPILUMAB
     Indication: ASTHMA

REACTIONS (13)
  - Pain [Unknown]
  - Arthralgia [Unknown]
  - Haemoptysis [Unknown]
  - Chest discomfort [Unknown]
  - Product use issue [Unknown]
  - Dysphonia [Unknown]
  - Product use in unapproved indication [Unknown]
  - Pruritus [Unknown]
  - Eye pain [Unknown]
  - Chest pain [Unknown]
  - Paraesthesia [Unknown]
  - Eye irritation [Unknown]
  - Drug ineffective [Unknown]

NARRATIVE: CASE EVENT DATE: 202007
